FAERS Safety Report 8576253-5 (Version None)
Quarter: 2012Q3

REPORT INFORMATION
  Report Type: 
  Country: None (occurrence: None)
  Receive Date: 20120724
  Receipt Date: 20120710
  Transmission Date: 20120928
  Serious: Yes (Other)
  Sender: FDA-Public Use
  Company Number: 2012S1000715

PATIENT
  Age: 63 Year
  Sex: Female

DRUGS (4)
  1. LIVAZO (PITAVASTATIN) [Suspect]
     Indication: DYSLIPIDAEMIA
     Dosage: 2 MG; 1X; PO
     Route: 048
     Dates: start: 20120409, end: 20120628
  2. BAZEDOXIFENE [Concomitant]
  3. BROMAZEPAM [Concomitant]
  4. ACECLOFENACO [Concomitant]

REACTIONS (10)
  - DRUG INEFFECTIVE [None]
  - BLOOD ALKALINE PHOSPHATASE INCREASED [None]
  - GAMMA-GLUTAMYLTRANSFERASE INCREASED [None]
  - LOW DENSITY LIPOPROTEIN INCREASED [None]
  - ALANINE AMINOTRANSFERASE INCREASED [None]
  - BLOOD TRIGLYCERIDES INCREASED [None]
  - HIGH DENSITY LIPOPROTEIN DECREASED [None]
  - ASPARTATE AMINOTRANSFERASE INCREASED [None]
  - BLOOD CHOLESTEROL INCREASED [None]
  - TOTAL CHOLESTEROL/HDL RATIO INCREASED [None]
